FAERS Safety Report 10190584 (Version 2)
Quarter: 2014Q2

REPORT INFORMATION
  Report Type: Spontaneous
  Country: TR (occurrence: TR)
  Receive Date: 20140523
  Receipt Date: 20140627
  Transmission Date: 20141212
  Serious: Yes (Other)
  Sender: FDA-Public Use
  Company Number: TR-AMGEN INC.-TURSP2014037898

PATIENT
  Age: 55 Year
  Sex: Female
  Weight: 98 kg

DRUGS (1)
  1. ENBREL [Suspect]
     Indication: RHEUMATOID ARTHRITIS
     Dosage: 25 MG, 2X/WEEK
     Route: 058
     Dates: start: 201403

REACTIONS (2)
  - Ankle fracture [Recovered/Resolved]
  - Gait disturbance [Recovering/Resolving]
